FAERS Safety Report 4400950-6 (Version None)
Quarter: 2004Q3

REPORT INFORMATION
  Report Type: 
  Country: None (occurrence: None)
  Receive Date: 20040907
  Receipt Date: 20030821
  Transmission Date: 20050211
  Serious: No
  Sender: FDA-Public Use
  Company Number: US-BRISTOL-MYERS SQUIBB COMPANY-12362851

PATIENT
  Age: 74 Year
  Sex: Female
  Weight: 63 kg

DRUGS (7)
  1. COUMADIN [Suspect]
     Indication: ATRIAL FIBRILLATION
     Dosage: DOSAGE: 2.5MG AND 5MG ALTERNATING DAILY
     Route: 048
     Dates: start: 20030201
  2. TOPROL-XL [Concomitant]
  3. LOTENSIN [Concomitant]
  4. LASIX [Concomitant]
  5. POTASSIUM [Concomitant]
  6. SYNTHROID [Concomitant]
  7. PREMARIN [Concomitant]
     Dosage: DISCONTINUED 3 MONTHS AGO

REACTIONS (4)
  - ABDOMINAL DISCOMFORT [None]
  - INTERNATIONAL NORMALISED RATIO ABNORMAL [None]
  - NAUSEA [None]
  - VOMITING [None]
